FAERS Safety Report 8588534-X (Version None)
Quarter: 2012Q3

REPORT INFORMATION
  Report Type: 
  Country: None (occurrence: None)
  Receive Date: 20120813
  Receipt Date: 20120806
  Transmission Date: 20120928
  Serious: Yes (Hospitalization)
  Sender: FDA-Public Use
  Company Number: US-JNJFOC-20120802929

PATIENT
  Sex: Female
  Weight: 44 kg

DRUGS (1)
  1. SIMPONI [Suspect]
     Indication: RHEUMATOID ARTHRITIS
     Route: 058
     Dates: start: 20110401, end: 20120601

REACTIONS (3)
  - RHEUMATOID ARTHRITIS [None]
  - STAPHYLOCOCCAL INFECTION [None]
  - OSTEOMYELITIS [None]
